FAERS Safety Report 9187388 (Version 1)
Quarter: 2012Q4

REPORT INFORMATION
  Report Type: 
  Country: US (occurrence: US)
  Receive Date: 20121116
  Receipt Date: 20121116
  Transmission Date: 20130627
  Serious: Yes (Other)
  Sender: FDA-Public Use
  Company Number: US-RB-046659-12

PATIENT
  Age: 27 None
  Sex: Female

DRUGS (6)
  1. SUBOXONE TABLET [Suspect]
     Indication: DRUG DEPENDENCE
     Dosage: Patient stated she always took less than 38 mgs
     Route: 065
     Dates: start: 2007, end: 200810
  2. SUBOXONE TABLET [Suspect]
     Dosage: 16-24 mg daily
     Route: 065
     Dates: start: 200612, end: 200809
  3. SUBUTEX [Suspect]
     Dosage: Various doses from 4 mg to 20 mg daily
     Route: 065
     Dates: start: 200809
  4. SUBUTEX [Suspect]
     Indication: DRUG DEPENDENCE
     Dosage: Patient stated she always took less than 38 mg
     Route: 065
     Dates: start: 200810
  5. NICOTINE [Concomitant]
     Indication: NICOTINE DEPENDENCE
     Dosage: Smoked 2 cigarettes a day during pregnancy
     Route: 065
  6. PRENATAL VITAMINS [Concomitant]
     Indication: PREGNANCY
     Dosage: 1 daily
     Route: 065
     Dates: start: 2008

REACTIONS (5)
  - Pre-eclampsia [Recovered/Resolved]
  - Constipation [Recovered/Resolved]
  - Oedema peripheral [Recovered/Resolved]
  - Nausea [Recovered/Resolved]
  - Exposure during pregnancy [Recovered/Resolved]
